FAERS Safety Report 7700922-X (Version None)
Quarter: 2011Q3

REPORT INFORMATION
  Report Type: 
  Country: None (occurrence: None)
  Receive Date: 20110822
  Receipt Date: 20110816
  Transmission Date: 20111222
  Serious: Yes (Death, Other)
  Sender: FDA-Public Use
  Company Number: PHFR2011GB04862

PATIENT
  Age: 60 Year
  Sex: Female

DRUGS (4)
  1. LETROZOLE [Suspect]
     Route: 048
     Dates: start: 20100602, end: 20110711
  2. SERETIDE [Concomitant]
     Route: 065
  3. ACETAMINOPHEN [Concomitant]
     Route: 065
  4. LEVOTHYROXINE SODIUM [Concomitant]
     Route: 065

REACTIONS (2)
  - DEATH [None]
  - PULMONARY EMBOLISM [None]
